FAERS Safety Report 6476832-5 (Version None)
Quarter: 2009Q4

REPORT INFORMATION
  Report Type: 
  Country: None (occurrence: None)
  Receive Date: 20091119
  Receipt Date: 20090813
  Transmission Date: 20100525
  Serious: Yes (Other)
  Sender: FDA-Public Use
  Company Number: 2009-200316-NL

PATIENT
  Sex: Male

DRUGS (1)
  1. IMPLANON [Suspect]
     Indication: DRUG EXPOSURE DURING PREGNANCY
     Dosage: 1 DF; ; TRPL
     Route: 064
     Dates: start: 20020101, end: 20020731

REACTIONS (4)
  - CAESAREAN SECTION [None]
  - FACIOSCAPULOHUMERAL MUSCULAR DYSTROPHY [None]
  - MATERNAL DRUGS AFFECTING FOETUS [None]
  - VISUAL ACUITY REDUCED [None]
